FAERS Safety Report 9098550 (Version 2)
Quarter: 2013Q1

REPORT INFORMATION
  Report Type: Spontaneous
  Country: GB (occurrence: GB)
  Receive Date: 20130213
  Receipt Date: 20130220
  Transmission Date: 20140127
  Serious: Yes (Other)
  Sender: FDA-Public Use
  Company Number: GB-SANOFI-AVENTIS-2013SA011080

PATIENT
  Age: 42 Year
  Sex: Male

DRUGS (1)
  1. LANTUS [Suspect]
     Indication: DIABETES MELLITUS
     Dosage: TITRATION, INCREASING FROM 10 UNITS, 12 UNITS TO 14 UNITS
     Route: 058
     Dates: start: 201301

REACTIONS (1)
  - VIIth nerve paralysis [Unknown]
